FAERS Safety Report 4887840-X (Version None)
Quarter: 2006Q1

REPORT INFORMATION
  Report Type: 
  Country: None (occurrence: None)
  Receive Date: 20060123
  Receipt Date: 20050330
  Transmission Date: 20060701
  Serious: Yes (Other)
  Sender: FDA-Public Use
  Company Number: US-MERCK-0503USA05243

PATIENT
  Age: 39 Year
  Sex: Male
  Weight: 82 kg

DRUGS (7)
  1. VIOXX [Suspect]
     Indication: BACK PAIN
     Route: 048
     Dates: start: 20010501, end: 20010801
  2. DARVOCET-N 50 [Concomitant]
     Route: 065
  3. ALBUTEROL [Concomitant]
     Indication: ASTHMA
     Route: 065
  4. ADVAIR DISKUS 250/50 [Concomitant]
     Indication: ASTHMA
     Route: 065
  5. TYLENOL W/ CODEINE NO. 3 [Concomitant]
     Indication: PAIN
     Route: 065
     Dates: start: 20000101
  6. MOTRIN [Concomitant]
     Indication: PAIN
     Route: 065
     Dates: start: 20000101
  7. NAPROSYN [Concomitant]
     Indication: PAIN
     Route: 065
     Dates: start: 20000101

REACTIONS (5)
  - ARTHRITIS [None]
  - CEREBROVASCULAR ACCIDENT [None]
  - CONVULSION [None]
  - EMOTIONAL DISTRESS [None]
  - OVERDOSE [None]
